FAERS Safety Report 5211059-6 (Version None)
Quarter: 2007Q1

REPORT INFORMATION
  Report Type: 
  Country: None (occurrence: None)
  Receive Date: 20070117
  Receipt Date: 20070105
  Transmission Date: 20070707
  Serious: Yes (Hospitalization, Other)
  Sender: FDA-Public Use
  Company Number: US-PFIZER INC-2007000160

PATIENT
  Sex: Female
  Weight: 54.4 kg

DRUGS (8)
  1. BEXTRA [Suspect]
     Indication: NECK PAIN
     Route: 048
  2. SYNTHROID [Concomitant]
  3. METHOTREXATE [Concomitant]
  4. PREDNISONE [Concomitant]
  5. ZELNORM [Concomitant]
  6. METHOCARBAMOL [Concomitant]
  7. DICYCLOMINE [Concomitant]
  8. LIBRAX [Concomitant]

REACTIONS (4)
  - CARDIOVASCULAR DISORDER [None]
  - CAROTID ARTERY STENOSIS [None]
  - CEREBROVASCULAR ACCIDENT [None]
  - INJURY [None]
